FAERS Safety Report 25680912 (Version 1)
Quarter: 2025Q3

REPORT INFORMATION
  Report Type: Spontaneous
  Country: EU (occurrence: EU)
  Receive Date: 20250814
  Receipt Date: 20250814
  Transmission Date: 20251020
  Serious: Yes (Hospitalization, Other)
  Sender: UNICHEM
  Company Number: EU-UNICHEM LABORATORIES LIMITED-UNI-2025-ES-003009

PATIENT

DRUGS (2)
  1. ALLOPURINOL [Suspect]
     Active Substance: ALLOPURINOL
     Indication: Hyperuricaemia
     Route: 065
  2. ALLOPURINOL [Suspect]
     Active Substance: ALLOPURINOL
     Route: 065

REACTIONS (2)
  - Toxic skin eruption [Recovered/Resolved]
  - Toxicity to various agents [Unknown]
